FAERS Safety Report 8500227-3 (Version None)
Quarter: 2012Q3

REPORT INFORMATION
  Report Type: 
  Country: None (occurrence: None)
  Receive Date: 20120710
  Receipt Date: 20120703
  Transmission Date: 20120928
  Serious: Yes (Hospitalization, Other)
  Sender: FDA-Public Use
  Company Number: PHHY2012JP033448

PATIENT
  Sex: Male
  Weight: 78 kg

DRUGS (8)
  1. DOCETAXEL [Suspect]
     Indication: PROSTATE CANCER
     Dosage: 79 MG, UNK
     Dates: start: 20091017
  2. DOCETAXEL [Suspect]
     Dosage: 79 MG, UNK
     Dates: start: 20110610, end: 20111125
  3. DEXAMETHASONE [Suspect]
     Indication: PROSTATE CANCER
     Dosage: 1 MG, DAILY
     Dates: start: 20091001, end: 20120301
  4. ZOLEDRONIC ACID [Suspect]
     Dosage: 4 MG EVERY 28 DAYS
     Route: 041
     Dates: start: 20110610
  5. DOCETAXEL [Suspect]
     Dosage: 50 MG/M2, EVERY 28 DAYS
  6. ZOLEDRONIC ACID [Suspect]
     Indication: METASTASES TO BONE
     Dosage: 4 MG EVERY 28 DAYS
     Route: 041
     Dates: start: 20091017, end: 20111125
  7. STEROIDS NOS [Concomitant]
     Dates: start: 20091001, end: 20120301
  8. CHEMOTHERAPEUTICS [Concomitant]
     Dates: start: 20091017, end: 20111125

REACTIONS (11)
  - ERYTHEMA [None]
  - EXPOSED BONE IN JAW [None]
  - NEOPLASM MALIGNANT [None]
  - OSTEONECROSIS OF JAW [None]
  - BONE DISORDER [None]
  - OSTEOMYELITIS [None]
  - METASTASES TO LYMPH NODES [None]
  - PAIN [None]
  - NEOPLASM PROGRESSION [None]
  - SWELLING [None]
  - BLOOD TESTOSTERONE DECREASED [None]
